FAERS Safety Report 20460946 (Version 1)
Quarter: 2022Q1

REPORT INFORMATION
  Report Type: Spontaneous
  Country: US (occurrence: US)
  Receive Date: 20220211
  Receipt Date: 20220211
  Transmission Date: 20220423
  Serious: No
  Sender: FDA-Public Use
  Company Number: US-PERRIGO-21US008203

PATIENT
  Sex: Female
  Weight: 80.272 kg

DRUGS (1)
  1. LOPERAMIDE HYDROCHLORIDE [Suspect]
     Active Substance: LOPERAMIDE HYDROCHLORIDE
     Indication: Diarrhoea
     Dosage: 1 TABLET, QD, PRN
     Route: 048
     Dates: end: 20210614

REACTIONS (2)
  - Expired product administered [Recovered/Resolved]
  - Underdose [Recovered/Resolved]
